FAERS Safety Report 17113440 (Version 1)
Quarter: 2019Q4

REPORT INFORMATION
  Report Type: Report from Study
  Country: CA (occurrence: CA)
  Receive Date: 20191205
  Receipt Date: 20191205
  Transmission Date: 20200122
  Serious: Yes (Other)
  Sender: FDA-Public Use
  Company Number: CA-AMGEN-CANCT2019037174

PATIENT
  Age: 33 Year
  Sex: Female

DRUGS (3)
  1. AIMOVIG [Suspect]
     Active Substance: ERENUMAB-AOOE
     Indication: MIGRAINE
     Dosage: 70 MILLIGRAM, QMO
     Route: 058
     Dates: start: 20190211
  2. AIMOVIG [Suspect]
     Active Substance: ERENUMAB-AOOE
     Dosage: 70 MILLIGRAM, QMO
     Route: 058
     Dates: end: 20190725
  3. AIMOVIG [Suspect]
     Active Substance: ERENUMAB-AOOE
     Dosage: 70 MILLIGRAM, QMO
     Route: 058

REACTIONS (13)
  - Cough [Unknown]
  - Injection site bruising [Recovered/Resolved]
  - Pulmonary congestion [Unknown]
  - Tremor [Unknown]
  - Injection site pain [Unknown]
  - Headache [Unknown]
  - Hyperhidrosis [Not Recovered/Not Resolved]
  - Alopecia [Recovering/Resolving]
  - Nasopharyngitis [Unknown]
  - Rhinorrhoea [Unknown]
  - Chest discomfort [Unknown]
  - Fatigue [Unknown]
  - Pyrexia [Unknown]

NARRATIVE: CASE EVENT DATE: 201902
